FAERS Safety Report 5858114-5 (Version None)
Quarter: 2008Q3

REPORT INFORMATION
  Report Type: 
  Country: None (occurrence: None)
  Receive Date: 20080826
  Receipt Date: 20080819
  Transmission Date: 20090109
  Serious: Yes (Death, Hospitalization)
  Sender: FDA-Public Use
  Company Number: US-BAYER-200815778NA

PATIENT
  Age: 56 Year
  Sex: Female
  Weight: 53 kg

DRUGS (3)
  1. NEXAVAR [Suspect]
     Indication: UTERINE LEIOMYOSARCOMA
     Dosage: TOTAL DAILY DOSE: 800 MG  UNIT DOSE: 200 MG
     Route: 048
     Dates: start: 20080125, end: 20080206
  2. NEXAVAR [Suspect]
     Dosage: AS USED: 400 MG  UNIT DOSE: 200 MG
     Route: 048
     Dates: start: 20080211, end: 20080211
  3. ASPIRIN [Concomitant]
     Indication: PELVIC VENOUS THROMBOSIS
     Dates: end: 20080201

REACTIONS (3)
  - CARDIAC FAILURE CONGESTIVE [None]
  - UPPER GASTROINTESTINAL HAEMORRHAGE [None]
  - UTERINE LEIOMYOSARCOMA [None]
